FAERS Safety Report 9967918 (Version 1)
Quarter: 2014Q1

REPORT INFORMATION
  Report Type: Report from Study
  Country: US (occurrence: US)
  Receive Date: 20140306
  Receipt Date: 20140306
  Transmission Date: 20141002
  Serious: No
  Sender: FDA-Public Use
  Company Number: US-ABBVIE-13P-163-1141776-00

PATIENT
  Age: 61 Year
  Sex: Male
  Weight: 78.54 kg

DRUGS (9)
  1. HUMIRA [Suspect]
     Indication: PSORIASIS
     Dosage: ONE DOSE
     Dates: start: 201307, end: 201307
  2. HUMIRA [Suspect]
     Dates: start: 2013
  3. NORVASC [Concomitant]
     Indication: HYPERTENSION
  4. NAPROSYN [Concomitant]
     Indication: ABDOMINAL PAIN
  5. FISH OIL [Concomitant]
     Indication: PRODUCT USED FOR UNKNOWN INDICATION
  6. MULTIVITAMIN [Concomitant]
     Indication: VITAMIN SUPPLEMENTATION
     Dosage: DAILY
  7. LORTAB [Concomitant]
     Indication: POSTOPERATIVE ANALGESIA
  8. PREVACID [Concomitant]
     Indication: DYSPEPSIA
  9. CLOBETASOL [Concomitant]
     Indication: PSORIASIS

REACTIONS (4)
  - Pruritus [Not Recovered/Not Resolved]
  - Umbilical hernia [Recovered/Resolved]
  - Psoriasis [Not Recovered/Not Resolved]
  - Drug ineffective [Not Recovered/Not Resolved]
